FAERS Safety Report 5280008-7 (Version None)
Quarter: 2007Q1

REPORT INFORMATION
  Report Type: 
  Country: None (occurrence: None)
  Receive Date: 20070327
  Receipt Date: 20070327
  Transmission Date: 20070707
  Serious: Yes (Other)
  Sender: FDA-Public Use
  Company Number: None

PATIENT
  Sex: Male
  Weight: 85.7 kg

DRUGS (6)
  1. TEMOZOLOMIDE 75 MG/M2 [Suspect]
     Indication: GLIOMA
     Dosage: 75 MG/ M2 QD PO
     Route: 048
     Dates: start: 20051227, end: 20070305
  2. ZONEGRAN [Concomitant]
  3. MIRAPEX [Concomitant]
  4. BACTRIM DS [Concomitant]
  5. COLACE [Concomitant]
  6. ZOFRAN [Concomitant]

REACTIONS (2)
  - BOWEN'S DISEASE [None]
  - SQUAMOUS CELL CARCINOMA OF SKIN [None]
